FAERS Safety Report 14542229 (Version 1)
Quarter: 2018Q1

REPORT INFORMATION
  Report Type: Spontaneous
  Country: US (occurrence: US)
  Receive Date: 20180216
  Receipt Date: 20180216
  Transmission Date: 20180509
  Serious: Yes (Other)
  Sender: FDA-Public Use
  Company Number: US-OTSUKA-DJ20126877

PATIENT
  Age: 20 Year
  Sex: Male
  Weight: 83.9 kg

DRUGS (3)
  1. ABILIFY [Suspect]
     Active Substance: ARIPIPRAZOLE
     Indication: MANIA
     Dosage: 1 DF, UNK
     Route: 048
  2. ESCITALOPRAM [Suspect]
     Active Substance: ESCITALOPRAM OXALATE
     Indication: PRODUCT USED FOR UNKNOWN INDICATION
     Dosage: UNK
     Route: 065
  3. LITHIUM. [Suspect]
     Active Substance: LITHIUM
     Indication: MANIA
     Dosage: UNK
     Route: 065
     Dates: end: 201112

REACTIONS (7)
  - Wrong technique in product usage process [Unknown]
  - Muscle twitching [Recovered/Resolved]
  - Abnormal behaviour [Recovering/Resolving]
  - Expired product administered [Unknown]
  - Mania [Unknown]
  - Feeling jittery [Recovered/Resolved]
  - Depression [Unknown]

NARRATIVE: CASE EVENT DATE: 2011
